FAERS Safety Report 6906006 (Version 8)
Quarter: 2012Q4

REPORT INFORMATION
  Report Type: 
  Country: US (occurrence: US)
  Receive Date: 20090210
  Receipt Date: 20121112
  Transmission Date: 20130627
  Serious: Yes (Hospitalization, Other)
  Sender: FDA-Public Use
  Company Number: US-ASTRAZENECA-2009UW03345

PATIENT
  Age: 64 Year
  Sex: Male

DRUGS (5)
  1. ATACAND [Suspect]
     Dosage: EVERY DAY
     Route: 048
  2. ATACAND HCT [Suspect]
     Dosage: 16/12.5 MG
     Route: 048
  3. LISINOPRIL [Suspect]
     Route: 048
  4. CRESTOR [Suspect]
     Route: 048
  5. TRAZODONE [Concomitant]

REACTIONS (14)
  - Cerebrovascular accident [Unknown]
  - Balance disorder [Unknown]
  - Bronchitis [Unknown]
  - Muscular weakness [Unknown]
  - Malaise [Unknown]
  - Malaise [Unknown]
  - Neck pain [Unknown]
  - Posture abnormal [Unknown]
  - Stress [Unknown]
  - Drug hypersensitivity [Unknown]
  - Cough [Unknown]
  - Dizziness [Unknown]
  - Intentional drug misuse [Unknown]
  - Drug ineffective [Unknown]
